FAERS Safety Report 10013298 (Version 2)
Quarter: 2014Q2

REPORT INFORMATION
  Report Type: Spontaneous
  Country: US (occurrence: US)
  Receive Date: 20140314
  Receipt Date: 20140410
  Transmission Date: 20141212
  Serious: No
  Sender: FDA-Public Use
  Company Number: US-TEVA-468827USA

PATIENT
  Age: 31 Year
  Sex: Female
  Weight: 79.9 kg

DRUGS (3)
  1. PARAGARD 380A [Suspect]
     Indication: CONTRACEPTION
     Route: 015
     Dates: start: 20140211, end: 20140311
  2. PARAGARD 380A [Suspect]
     Route: 015
     Dates: start: 20140311
  3. VENTOLIN INHALER [Concomitant]
     Indication: ASTHMA
     Route: 055

REACTIONS (1)
  - Device expulsion [Recovered/Resolved]
